FAERS Safety Report 9440216 (Version 3)
Quarter: 2013Q4

REPORT INFORMATION
  Report Type: Spontaneous
  Country: BR (occurrence: BR)
  Receive Date: 20130805
  Receipt Date: 20131008
  Transmission Date: 20140711
  Serious: Yes (Other)
  Sender: FDA-Public Use
  Company Number: PHHY2013BR081977

PATIENT
  Sex: Female

DRUGS (12)
  1. TEGRETOL [Suspect]
     Indication: SYNCOPE
     Dosage: 1 DF, DAILY
     Route: 048
  2. CALCIUM D [Suspect]
     Indication: OSTEOPOROSIS
     Dosage: 1 DF, DAILY
     Route: 048
  3. ANTIBIOTICS [Suspect]
     Indication: RENAL PAIN
     Dosage: UNK UKN, UNK
  4. ANTIBIOTICS [Suspect]
     Indication: KIDNEY INFECTION
  5. ANTIBIOTICS [Suspect]
     Indication: URINARY TRACT INFECTION
  6. PURAN T4 [Concomitant]
     Indication: THYROID DISORDER
     Dosage: 1 DF, DAILY
     Route: 048
  7. ASPIRINA PREVENT [Concomitant]
     Indication: ANTIPLATELET THERAPY
     Dosage: 1 DF, AT LUNCH
     Route: 048
  8. DIAMOX [Concomitant]
     Indication: GLAUCOMA
     Dosage: 1 DF, DAILY
     Route: 048
  9. XALATAN [Concomitant]
     Indication: GLAUCOMA
     Dosage: 1 DROP IN EACH EYE
  10. LEXOTAN [Concomitant]
     Dosage: 6 MG, UNK
  11. AZOPT [Concomitant]
     Indication: GLAUCOMA
     Dosage: 1 DROP EVERY 12 HOURS
  12. ALPHAGEN [Concomitant]
     Indication: GLAUCOMA
     Dosage: 1 DROP EVERY 12 HOURS

REACTIONS (19)
  - Thrombosis [Recovered/Resolved]
  - Cerebrovascular accident [Recovered/Resolved]
  - Kidney infection [Recovered/Resolved]
  - Renal pain [Recovered/Resolved]
  - Vomiting [Recovered/Resolved]
  - Urinary tract infection [Recovered/Resolved]
  - Blindness [Not Recovered/Not Resolved]
  - Glaucoma [Not Recovered/Not Resolved]
  - Eye pain [Not Recovered/Not Resolved]
  - Intraocular pressure increased [Unknown]
  - Syncope [Recovered/Resolved]
  - Panic attack [Not Recovered/Not Resolved]
  - Feeling of despair [Not Recovered/Not Resolved]
  - Blood cholesterol increased [Not Recovered/Not Resolved]
  - Heart rate increased [Recovered/Resolved]
  - Blood pressure decreased [Recovered/Resolved]
  - Dizziness [Recovered/Resolved]
  - Diarrhoea [Recovered/Resolved]
  - Incorrect dose administered [Unknown]
